FAERS Safety Report 8501828-9 (Version None)
Quarter: 2012Q3

REPORT INFORMATION
  Report Type: 
  Country: None (occurrence: None)
  Receive Date: 20120705
  Receipt Date: 20120705
  Transmission Date: 20120928
  Serious: Yes (Other)
  Sender: FDA-Public Use
  Company Number: None

PATIENT
  Age: 51 Year
  Sex: Female
  Weight: 74.8435 kg

DRUGS (1)
  1. HUMIRA [Suspect]
     Indication: CROHN'S DISEASE
     Dosage: 80MG 2ND WEEK SUBDERMAL 40 TWO WEEKS LATER SUBDERMAL
     Route: 059
     Dates: start: 20120501, end: 20120531

REACTIONS (4)
  - CHEMICAL INJURY [None]
  - PIGMENTATION DISORDER [None]
  - RASH PRURITIC [None]
  - PAIN [None]
